FAERS Safety Report 9503285 (Version 2)
Quarter: 2013Q3

REPORT INFORMATION
  Report Type: Spontaneous
  Country: JP (occurrence: JP)
  Receive Date: 20130906
  Receipt Date: 20130906
  Transmission Date: 20140515
  Serious: Yes (Hospitalization, Other)
  Sender: FDA-Public Use
  Company Number: JP-TAKEDA-TCI2013A04886

PATIENT
  Age: 57 Year
  Sex: Male
  Weight: 76 kg

DRUGS (20)
  1. NESINA TABLETS 25 MG (ALOGLIPTIN BENZOATE) [Suspect]
     Indication: TYPE 2 DIABETES MELLITUS
     Dosage: 25 MG, QD
     Route: 048
     Dates: start: 20120630, end: 20130810
  2. NESINA TABLETS 25 MG (ALOGLIPTIN BENZOATE) [Suspect]
     Dosage: 25 MG, QD
     Route: 048
     Dates: start: 20120701, end: 20130810
  3. BAYASPIRIN [Concomitant]
     Indication: ANGINA PECTORIS
     Route: 048
  4. BAYASPIRIN [Concomitant]
     Route: 048
  5. OMEPRAL [Concomitant]
     Indication: GASTROOESOPHAGEAL REFLUX DISEASE
     Route: 048
  6. OMEPRAL [Concomitant]
     Route: 048
  7. MEVALOTIN [Concomitant]
     Indication: HYPERCHOLESTEROLAEMIA
     Route: 048
  8. MEVALOTIN [Concomitant]
     Route: 048
  9. EXFORGE [Concomitant]
     Indication: HYPERTENSION
     Route: 048
  10. EXFORGE [Concomitant]
     Route: 048
     Dates: start: 20130224
  11. NITOROL R [Concomitant]
     Indication: ANGINA PECTORIS
     Route: 048
  12. NITOROL R [Concomitant]
     Route: 048
  13. METGLUCO [Concomitant]
     Indication: TYPE 2 DIABETES MELLITUS
     Route: 048
  14. METGLUCO [Concomitant]
     Route: 048
  15. MAGMITT [Concomitant]
     Indication: CONSTIPATION
     Route: 048
  16. MAGMITT [Concomitant]
     Route: 048
  17. PANTOSIN [Concomitant]
     Indication: CONSTIPATION
     Route: 048
  18. PANTOSIN [Concomitant]
     Route: 048
  19. AMLODIN OD [Concomitant]
     Indication: HYPERTENSION
     Dosage: 5 MG, QD
     Route: 048
     Dates: end: 20130223
  20. NU-LOTAN [Concomitant]
     Indication: HYPERTENSION
     Route: 048
     Dates: end: 20130223

REACTIONS (4)
  - Ileus [Recovered/Resolved]
  - Nausea [Recovered/Resolved]
  - Vomiting [Recovered/Resolved]
  - Abdominal pain upper [Recovered/Resolved]
